FAERS Safety Report 5918618-3 (Version None)
Quarter: 2008Q4

REPORT INFORMATION
  Report Type: 
  Country: None (occurrence: None)
  Receive Date: 20081015
  Receipt Date: 20081006
  Transmission Date: 20090506
  Serious: Yes (Hospitalization)
  Sender: FDA-Public Use
  Company Number: BR-JNJFOC-20081002237

PATIENT
  Age: 29 Year
  Sex: Female
  Weight: 73 kg

DRUGS (1)
  1. ORTHO EVRA [Suspect]
     Indication: CONTRACEPTION
     Dosage: ETHINYL ESTRADIOL 0.6MG/ NORELGESTROMIN 6 MG
     Route: 062

REACTIONS (5)
  - HEADACHE [None]
  - KNEE OPERATION [None]
  - METRORRHAGIA [None]
  - NAUSEA [None]
  - WITHDRAWAL BLEED [None]
